FAERS Safety Report 21264762 (Version 1)
Quarter: 2022Q3

REPORT INFORMATION
  Report Type: Spontaneous
  Country: JP (occurrence: JP)
  Receive Date: 20220829
  Receipt Date: 20220829
  Transmission Date: 20221026
  Serious: Yes (Death, Other)
  Sender: FDA-Public Use
  Company Number: JP-SUN PHARMACEUTICAL INDUSTRIES LTD-2022R1-352478

PATIENT
  Age: 25 Year
  Sex: Female

DRUGS (1)
  1. AMPHOTERICIN B [Suspect]
     Active Substance: AMPHOTERICIN B
     Indication: Mucormycosis
     Dosage: 10 MILLIGRAM/KILOGRAM, UNK
     Route: 065

REACTIONS (2)
  - Cystitis haemorrhagic [Fatal]
  - Pneumonia aspiration [Fatal]
